FAERS Safety Report 21654287 (Version 1)
Quarter: 2022Q4

REPORT INFORMATION
  Report Type: Report from Study
  Country: US (occurrence: US)
  Receive Date: 20221129
  Receipt Date: 20221129
  Transmission Date: 20230112
  Serious: No
  Sender: FDA-Public Use
  Company Number: US-ABBVIE-4168944

PATIENT
  Age: 69 Year
  Sex: Female

DRUGS (4)
  1. HUMIRA [Suspect]
     Active Substance: ADALIMUMAB
     Indication: Psoriatic arthropathy
     Dosage: FORM STRENGTH: 40 MG
     Route: 058
  2. Moderna [Concomitant]
     Indication: COVID-19 immunisation
     Route: 030
     Dates: start: 20210308, end: 20210308
  3. Moderna [Concomitant]
     Indication: COVID-19 immunisation
     Route: 030
     Dates: start: 20210405, end: 20210405
  4. Moderna [Concomitant]
     Indication: COVID-19 immunisation
     Route: 030
     Dates: start: 20211115, end: 20211115

REACTIONS (2)
  - COVID-19 [Not Recovered/Not Resolved]
  - Psoriasis [Unknown]

NARRATIVE: CASE EVENT DATE: 20220828
